FAERS Safety Report 11448135 (Version 1)
Quarter: 2015Q3

REPORT INFORMATION
  Report Type: Spontaneous
  Country: US (occurrence: US)
  Receive Date: 20150831
  Receipt Date: 20150831
  Transmission Date: 20151125
  Serious: No
  Sender: FDA-Public Use
  Company Number: US-ELI_LILLY_AND_COMPANY-US200906002164

PATIENT
  Age: 18 Year
  Sex: Male

DRUGS (3)
  1. LEXAPRO [Concomitant]
     Active Substance: ESCITALOPRAM OXALATE
     Dosage: 20 MG, DAILY (1/D)
  2. LEXAPRO [Concomitant]
     Active Substance: ESCITALOPRAM OXALATE
     Dosage: 10 MG, DAILY (1/D)
  3. CYMBALTA [Suspect]
     Active Substance: DULOXETINE HYDROCHLORIDE
     Indication: DEPRESSION
     Dosage: 60 MG, DAILY (1/D)
     Dates: start: 2007

REACTIONS (10)
  - Restless legs syndrome [Unknown]
  - Headache [Unknown]
  - Feeling jittery [Unknown]
  - Somnolence [Unknown]
  - Dizziness postural [Unknown]
  - Feeling abnormal [Unknown]
  - Nausea [Unknown]
  - Vasodilatation [Unknown]
  - Tremor [Unknown]
  - Abdominal discomfort [Unknown]
